FAERS Safety Report 13788461 (Version 1)
Quarter: 2017Q3

REPORT INFORMATION
  Report Type: Other
  Country: US (occurrence: US)
  Receive Date: 20170725
  Receipt Date: 20170725
  Transmission Date: 20171127
  Serious: Yes (Other)
  Sender: FDA-Public Use
  Company Number: US-VELOXIS PHARMACEUTICALS-2023712

PATIENT
  Age: 4 Year
  Sex: Male

DRUGS (8)
  1. METHOTREXATE. [Suspect]
     Active Substance: METHOTREXATE
  2. CYCLOSPORINE. [Suspect]
     Active Substance: CYCLOSPORINE
  3. ENVARSUS XR [Suspect]
     Active Substance: TACROLIMUS
     Indication: PROPHYLAXIS AGAINST GRAFT VERSUS HOST DISEASE
  4. FLUDARABINE [Suspect]
     Active Substance: FLUDARABINE PHOSPHATE
  5. ALEMTUZUMAB [Suspect]
     Active Substance: ALEMTUZUMAB
  6. SIROLIMUS. [Suspect]
     Active Substance: SIROLIMUS
  7. MELPHALAN HYDROCHLORIDE. [Suspect]
     Active Substance: MELPHALAN HYDROCHLORIDE
  8. MYCOPHENOLATE MOFETIL. [Suspect]
     Active Substance: MYCOPHENOLATE MOFETIL

REACTIONS (3)
  - Intussusception [Recovered/Resolved]
  - Product use in unapproved indication [Unknown]
  - Thrombocytopenia [Unknown]
